FAERS Safety Report 8004373-2 (Version None)
Quarter: 2011Q4

REPORT INFORMATION
  Report Type: 
  Country: None (occurrence: None)
  Receive Date: 20111223
  Receipt Date: 20111215
  Transmission Date: 20120403
  Serious: No
  Sender: FDA-Public Use
  Company Number: US-BIOGENIDEC-2011BI047348

PATIENT
  Age: 47 Year
  Sex: Female

DRUGS (3)
  1. AVONEX [Suspect]
     Indication: MULTIPLE SCLEROSIS
     Route: 030
     Dates: start: 20110601
  2. STEROIDS [Concomitant]
     Indication: MULTIPLE SCLEROSIS
  3. AVONEX [Suspect]
     Route: 030
     Dates: start: 20080423, end: 20090616

REACTIONS (2)
  - SPEECH DISORDER [None]
  - MULTIPLE SCLEROSIS RELAPSE [None]
